FAERS Safety Report 5611336-0 (Version None)
Quarter: 2008Q1

REPORT INFORMATION
  Report Type: 
  Country: None (occurrence: None)
  Receive Date: 20080201
  Receipt Date: 20080124
  Transmission Date: 20080703
  Serious: Yes (Disabling, Other)
  Sender: FDA-Public Use
  Company Number: GB-ABBOTT-08P-167-0435140-00

PATIENT
  Age: 34 Year
  Weight: 92 kg

DRUGS (6)
  1. SIBUTRAMINE [Suspect]
     Indication: OBESITY
     Dates: start: 20070701, end: 20080114
  2. NORGESTIMATE AND ETHINYL ESTRADIOL [Concomitant]
     Indication: DRUG USE FOR UNKNOWN INDICATION
     Dates: start: 20071121
  3. TRIAMCINOLONE ACETONIDE [Concomitant]
     Indication: DRUG USE FOR UNKNOWN INDICATION
     Dosage: 55 MCG  QID (HALVING WHEN SYMPTOMS CONTROLLED)
     Dates: start: 20071121
  4. BECLOMETHASONE DIPROPIONATE [Concomitant]
     Indication: DRUG USE FOR UNKNOWN INDICATION
     Dates: start: 20070514
  5. ALBUTEROL [Concomitant]
     Indication: DRUG USE FOR UNKNOWN INDICATION
     Dates: start: 20061219
  6. CETIRIZINE HCL [Concomitant]
     Indication: DRUG USE FOR UNKNOWN INDICATION
     Dates: start: 20060119

REACTIONS (2)
  - GASTROENTERITIS [None]
  - HAEMATEMESIS [None]
